FAERS Safety Report 23571652 (Version 1)
Quarter: 2024Q1

REPORT INFORMATION
  Report Type: Spontaneous
  Country: US (occurrence: None)
  Receive Date: 20240227
  Receipt Date: 20240227
  Transmission Date: 20240410
  Serious: Yes (Other)
  Sender: FDA-Public Use
  Company Number: 2024A041879

PATIENT
  Sex: Female

DRUGS (1)
  1. SEROQUEL [Suspect]
     Active Substance: QUETIAPINE FUMARATE
     Dosage: UNKNOWN
     Route: 048

REACTIONS (9)
  - Cataract [Unknown]
  - Bipolar disorder [Unknown]
  - Depression [Unknown]
  - Vision blurred [Unknown]
  - Hypertension [Unknown]
  - Blood sodium decreased [Unknown]
  - Insomnia [Unknown]
  - Sedation [Unknown]
  - Agitation [Unknown]
